FAERS Safety Report 10256554 (Version 1)
Quarter: 2014Q2

REPORT INFORMATION
  Report Type: Spontaneous
  Country: US (occurrence: US)
  Receive Date: 20140624
  Receipt Date: 20140624
  Transmission Date: 20141212
  Serious: No
  Sender: FDA-Public Use
  Company Number: US-ZOGENIX, INC.-2011ZX000379

PATIENT
  Age: 49 Year
  Sex: Female

DRUGS (5)
  1. SUMAVEL DOSEPRO [Suspect]
     Indication: MIGRAINE
     Dates: start: 201107, end: 201107
  2. SUMAVEL DOSEPRO [Suspect]
  3. TOPAMAX [Concomitant]
     Indication: HEADACHE
     Route: 048
  4. PHENERGAN /00033001/ [Concomitant]
     Indication: NAUSEA
     Route: 048
  5. LASIX /00032601/ [Concomitant]
     Indication: HEADACHE
     Route: 048

REACTIONS (2)
  - Discomfort [Recovered/Resolved]
  - Local swelling [Recovered/Resolved]
